FAERS Safety Report 25391712 (Version 2)
Quarter: 2025Q3

REPORT INFORMATION
  Report Type: Spontaneous
  Country: BR (occurrence: BR)
  Receive Date: 20250603
  Receipt Date: 20250811
  Transmission Date: 20251020
  Serious: No
  Sender: NOVARTIS
  Company Number: BR-002147023-NVSC2025BR086962

PATIENT

DRUGS (1)
  1. IMATINIB [Suspect]
     Active Substance: IMATINIB
     Indication: Product used for unknown indication
     Route: 065

REACTIONS (8)
  - Cytogenetic analysis abnormal [Unknown]
  - Therapeutic response decreased [Unknown]
  - Hypertension [Unknown]
  - Dyslipidaemia [Unknown]
  - Intermittent claudication [Unknown]
  - Arterial occlusive disease [Unknown]
  - Peripheral arterial occlusive disease [Unknown]
  - Loss of therapeutic response [Unknown]
